FAERS Safety Report 7995147-7 (Version None)
Quarter: 2011Q4

REPORT INFORMATION
  Report Type: 
  Country: None (occurrence: None)
  Receive Date: 20111220
  Receipt Date: 20111213
  Transmission Date: 20120403
  Serious: Yes (Hospitalization)
  Sender: FDA-Public Use
  Company Number: JP-GLAXOSMITHKLINE-B0737324A

PATIENT
  Sex: Female

DRUGS (8)
  1. LAMICTAL [Suspect]
     Indication: BIPOLAR DISORDER
     Dosage: 25MG PER DAY
     Route: 048
     Dates: start: 20110626, end: 20110705
  2. ABILIFY [Concomitant]
     Route: 048
  3. LAMICTAL [Suspect]
     Route: 048
     Dates: start: 20110720, end: 20110725
  4. DORAL [Concomitant]
     Route: 048
  5. LAMICTAL [Suspect]
     Dosage: 50MG PER DAY
     Route: 048
     Dates: start: 20110706, end: 20110719
  6. LITHIUM CARBONATE [Concomitant]
     Indication: BIPOLAR DISORDER
     Dosage: 600MG PER DAY
     Route: 048
     Dates: start: 20110304, end: 20110726
  7. DEPAS [Concomitant]
     Indication: INSOMNIA
     Dosage: .5MG PER DAY
     Route: 048
     Dates: start: 20101108, end: 20110726
  8. ZOLPIDEM [Concomitant]
     Route: 048

REACTIONS (7)
  - RASH [None]
  - OROPHARYNGEAL PAIN [None]
  - ERYTHEMA MULTIFORME [None]
  - DRUG ERUPTION [None]
  - PYREXIA [None]
  - LIP SWELLING [None]
  - AURICULAR SWELLING [None]
